FAERS Safety Report 5771333-1 (Version None)
Quarter: 2008Q2

REPORT INFORMATION
  Report Type: 
  Country: None (occurrence: None)
  Receive Date: 20080613
  Receipt Date: 20080602
  Transmission Date: 20081010
  Serious: Yes (Hospitalization, Other)
  Sender: FDA-Public Use
  Company Number: US-JNJFOC-20070804724

PATIENT
  Sex: Female
  Weight: 93.44 kg

DRUGS (10)
  1. TYLENOL W/ CODEINE [Suspect]
     Indication: PAIN
     Route: 048
  2. ALAVA [Suspect]
     Indication: HEADACHE
     Route: 048
  3. ALAVA [Suspect]
     Indication: BACK PAIN
     Dosage: 1320MG / 440MG
     Route: 048
  4. CARDIZEM [Concomitant]
     Route: 048
  5. ZESTRIL [Concomitant]
     Route: 048
  6. MICRONASE [Concomitant]
     Route: 048
  7. TENORETIC 100 [Concomitant]
     Route: 048
  8. LIPITOR [Concomitant]
     Route: 048
  9. MOBIC [Concomitant]
     Indication: PAIN
     Route: 065
  10. GLUCOPHAGE [Concomitant]
     Route: 065

REACTIONS (4)
  - GASTRIC PERFORATION [None]
  - PROCTALGIA [None]
  - RECTAL HAEMORRHAGE [None]
  - VAGINAL HAEMORRHAGE [None]
